FAERS Safety Report 21492838 (Version 1)
Quarter: 2022Q4

REPORT INFORMATION
  Report Type: Spontaneous
  Country: US (occurrence: None)
  Receive Date: 20221020
  Receipt Date: 20221020
  Transmission Date: 20230112
  Serious: No
  Sender: FDA-Public Use
  Company Number: None

PATIENT
  Sex: Female

DRUGS (1)
  1. CAPECITABINE [Suspect]
     Active Substance: CAPECITABINE
     Dosage: 1000MG BID ORAL?
     Route: 048

REACTIONS (13)
  - Therapy interrupted [None]
  - Chest discomfort [None]
  - Pain in extremity [None]
  - Back pain [None]
  - Urine analysis abnormal [None]
  - Arthralgia [None]
  - Gait disturbance [None]
  - Sinus pain [None]
  - Diarrhoea [None]
  - Dizziness [None]
  - Nausea [None]
  - Rhinorrhoea [None]
  - Faeces discoloured [None]
